FAERS Safety Report 7534166-1 (Version None)
Quarter: 2011Q2

REPORT INFORMATION
  Report Type: 
  Country: None (occurrence: None)
  Receive Date: 20110608
  Receipt Date: 20061115
  Transmission Date: 20111010
  Serious: Yes (Hospitalization)
  Sender: FDA-Public Use
  Company Number: PHFR2006GB03085

PATIENT
  Sex: Female

DRUGS (2)
  1. CLOZAPINE [Suspect]
     Indication: SCHIZOPHRENIA
     Dosage: 125 MG X 2 IN ERROR
     Route: 048
     Dates: start: 20061006
  2. CLOZAPINE [Suspect]
     Dosage: 550 MG, DAILY
     Route: 048

REACTIONS (1)
  - MEDICATION ERROR [None]
